FAERS Safety Report 4628731-9 (Version None)
Quarter: 2005Q2

REPORT INFORMATION
  Report Type: 
  Country: None (occurrence: None)
  Receive Date: 20050406
  Receipt Date: 20050321
  Transmission Date: 20051028
  Serious: Yes (Other)
  Sender: FDA-Public Use
  Company Number: 03-000448

PATIENT
  Age: 70 Year
  Sex: Female

DRUGS (1)
  1. ESTRACE [Suspect]
     Dosage: 1 G, 2X WEEKLY, VAGINAL
     Route: 067
     Dates: start: 20001229, end: 20031117

REACTIONS (1)
  - RETINAL VEIN OCCLUSION [None]
